FAERS Safety Report 10030717 (Version 1)
Quarter: 2014Q1

REPORT INFORMATION
  Report Type: Spontaneous
  Country: FR (occurrence: FR)
  Receive Date: 20140323
  Receipt Date: 20140323
  Transmission Date: 20141002
  Serious: Yes (Hospitalization)
  Sender: FDA-Public Use
  Company Number: FR-MERCK-1403FRA006656

PATIENT
  Age: 83 Year
  Sex: Female

DRUGS (1)
  1. TIENAM 500MG/500MG, POUDRE POUR PERFUSION [Suspect]
     Indication: KLEBSIELLA SEPSIS
     Dosage: 1 G, QD
     Route: 042
     Dates: start: 20140106, end: 20140120

REACTIONS (2)
  - Renal failure chronic [Recovering/Resolving]
  - Tubulointerstitial nephritis [Recovering/Resolving]
